FAERS Safety Report 20707649 (Version 1)
Quarter: 2022Q2

REPORT INFORMATION
  Report Type: Spontaneous
  Country: JP (occurrence: JP)
  Receive Date: 20220413
  Receipt Date: 20220413
  Transmission Date: 20220721
  Serious: Yes (Death, Other)
  Sender: FDA-Public Use
  Company Number: JP-AMGEN-JPNSP2022062117

PATIENT
  Sex: Female

DRUGS (1)
  1. ROMOSOZUMAB [Suspect]
     Active Substance: ROMOSOZUMAB
     Indication: Osteoporosis postmenopausal
     Dosage: UNK
     Route: 065

REACTIONS (13)
  - Death [Fatal]
  - Subarachnoid haemorrhage [Unknown]
  - Cerebral haemorrhage [Unknown]
  - Pathological fracture [Unknown]
  - Dizziness [Unknown]
  - Injection site pain [Unknown]
  - Blood pressure decreased [Unknown]
  - Blood pressure increased [Unknown]
  - Herpes zoster [Unknown]
  - Flushing [Unknown]
  - Cardiac valve disease [Unknown]
  - Oral lichen planus [Unknown]
  - Serum procollagen type I N-terminal propeptide decreased [Unknown]
